FAERS Safety Report 12701514 (Version 2)
Quarter: 2016Q4

REPORT INFORMATION
  Report Type: Spontaneous
  Country: US (occurrence: US)
  Receive Date: 20160831
  Receipt Date: 20161017
  Transmission Date: 20170207
  Serious: No
  Sender: FDA-Public Use
  Company Number: US-PFIZER INC-2016407158

PATIENT
  Age: 63 Year
  Sex: Female
  Weight: 102.4 kg

DRUGS (1)
  1. CELEBREX [Suspect]
     Active Substance: CELECOXIB
     Indication: ARTHRITIS
     Dosage: UNK

REACTIONS (2)
  - Drug hypersensitivity [Unknown]
  - Faeces discoloured [Recovered/Resolved]
